FAERS Safety Report 18085170 (Version 1)
Quarter: 2020Q3

REPORT INFORMATION
  Report Type: Spontaneous
  Country: NL (occurrence: NL)
  Receive Date: 20200729
  Receipt Date: 20200729
  Transmission Date: 20201103
  Serious: Yes (Hospitalization)
  Sender: FDA-Public Use
  Company Number: NVSC2020NL210019

PATIENT
  Age: 73 Year
  Sex: Female
  Weight: 65 kg

DRUGS (5)
  1. PEMETREXED. [Suspect]
     Active Substance: PEMETREXED
     Indication: LUNG NEOPLASM MALIGNANT
     Dosage: 850 MG
     Route: 065
     Dates: start: 20200709, end: 20200709
  2. CARBOPLATIN. [Suspect]
     Active Substance: CARBOPLATIN
     Indication: LUNG NEOPLASM MALIGNANT
     Dosage: 509 MG
     Route: 065
     Dates: start: 20200709, end: 20200709
  3. IPRATROPIUM [Concomitant]
     Active Substance: IPRATROPIUM
     Indication: PRODUCT USED FOR UNKNOWN INDICATION
     Dosage: 20 UG (AEROSOL 20 UG PER DOSE)
     Route: 065
  4. FOLIUMZUUR [Concomitant]
     Active Substance: FOLIC ACID
     Indication: PRODUCT USED FOR UNKNOWN INDICATION
     Dosage: 0.5 MG
     Route: 065
  5. HIDROXOCOBALAMINA [Concomitant]
     Active Substance: HYDROXOCOBALAMIN
     Indication: PRODUCT USED FOR UNKNOWN INDICATION
     Dosage: 500 MG/ML (INJECTION FLUID)
     Route: 065

REACTIONS (1)
  - Acute myocardial infarction [Recovering/Resolving]

NARRATIVE: CASE EVENT DATE: 20200711
